FAERS Safety Report 7480415-8 (Version None)
Quarter: 2011Q2

REPORT INFORMATION
  Report Type: 
  Country: None (occurrence: None)
  Receive Date: 20110516
  Receipt Date: 20110511
  Transmission Date: 20111010
  Serious: Yes (Death)
  Sender: FDA-Public Use
  Company Number: PHHY2010MX52255

PATIENT
  Sex: Female

DRUGS (1)
  1. ZOLEDRONIC ACID [Suspect]
     Indication: OSTEOPOROSIS
     Dosage: ONE INJECTION (5 MG/100 ML) PER YEAR
     Route: 042
     Dates: start: 20090301

REACTIONS (4)
  - MOVEMENT DISORDER [None]
  - BEDRIDDEN [None]
  - INFARCTION [None]
  - ASTHENIA [None]
